FAERS Safety Report 13533075 (Version 3)
Quarter: 2017Q2

REPORT INFORMATION
  Report Type: Spontaneous
  Country: JP (occurrence: JP)
  Receive Date: 20170510
  Receipt Date: 20170602
  Transmission Date: 20170830
  Serious: Yes (Hospitalization, Other)
  Sender: FDA-Public Use
  Company Number: JP-ASTRAZENECA-2017SE49189

PATIENT
  Age: 69 Year
  Sex: Male

DRUGS (6)
  1. BISOPROLOL FUMARATE. [Concomitant]
     Active Substance: BISOPROLOL FUMARATE
     Dosage: SAWAI, DOSE UNKNOWN
     Route: 048
  2. CILOSTAZOL. [Concomitant]
     Active Substance: CILOSTAZOL
     Dosage: DOSE UNKNOWN
     Route: 048
  3. LIXIANA [Concomitant]
     Active Substance: EDOXABAN TOSYLATE
     Dosage: DOSE UNKNOWN
     Route: 048
  4. ZOLPIDEM TARTRATE. [Concomitant]
     Active Substance: ZOLPIDEM TARTRATE
     Dosage: NP, DOSE UNKNOWN
     Route: 048
  5. CRESTOR [Suspect]
     Active Substance: ROSUVASTATIN CALCIUM
     Route: 048
  6. COVERSYL [Concomitant]
     Active Substance: PERINDOPRIL
     Dosage: DOSE UNKNOWN
     Route: 048

REACTIONS (5)
  - Anaemia [Unknown]
  - Myocardial infarction [Unknown]
  - Pleural effusion [Unknown]
  - Haemothorax [Unknown]
  - Fall [Unknown]
